FAERS Safety Report 4404316-4 (Version None)
Quarter: 2004Q3

REPORT INFORMATION
  Report Type: 
  Country: None (occurrence: None)
  Receive Date: 20040720
  Receipt Date: 20040714
  Transmission Date: 20050211
  Serious: Yes (Other)
  Sender: FDA-Public Use
  Company Number: 200410708BVD

PATIENT
  Age: 74 Year
  Sex: Female
  Weight: 75 kg

DRUGS (3)
  1. AVELOX [Suspect]
     Indication: TRACHEITIS
     Dosage: 400 MG, TOTAL DAILY, ORAL
     Route: 048
     Dates: start: 20040420, end: 20040427
  2. ENALAPRIL MALEATE [Concomitant]
  3. VENORUTON INTENS [Concomitant]

REACTIONS (8)
  - BITE [None]
  - DISORIENTATION [None]
  - DYSGEUSIA [None]
  - MEMORY IMPAIRMENT [None]
  - PAROSMIA [None]
  - TONGUE BITING [None]
  - TONGUE INJURY [None]
  - WOUND [None]
